FAERS Safety Report 7931568-6 (Version None)
Quarter: 2011Q4

REPORT INFORMATION
  Report Type: 
  Country: None (occurrence: None)
  Receive Date: 20111121
  Receipt Date: 20111121
  Transmission Date: 20120403
  Serious: Yes (Other)
  Sender: FDA-Public Use
  Company Number: None

PATIENT
  Age: 41 Year
  Sex: Male
  Weight: 77.11 kg

DRUGS (2)
  1. VIIBRYD [Suspect]
     Indication: ANXIETY
     Dosage: 40MG ONCE IN MORNING
     Route: 048
     Dates: start: 20110701, end: 20110831
  2. VIIBRYD [Suspect]
     Indication: DEPRESSION
     Dosage: 40MG ONCE IN MORNING
     Route: 048
     Dates: start: 20110701, end: 20110831

REACTIONS (3)
  - DRY MOUTH [None]
  - MIDDLE INSOMNIA [None]
  - PANIC ATTACK [None]
